FAERS Safety Report 19550911 (Version 1)
Quarter: 2021Q3

REPORT INFORMATION
  Report Type: Spontaneous
  Country: US (occurrence: US)
  Receive Date: 20210715
  Receipt Date: 20210715
  Transmission Date: 20211014
  Serious: Yes (Disabling, Other)
  Sender: FDA-Public Use
  Company Number: None

PATIENT
  Age: 70 Year
  Sex: Female
  Weight: 67.13 kg

DRUGS (1)
  1. DOXYCYCLINE MONO 100 MG CAP [Suspect]
     Active Substance: DOXYCYCLINE
     Indication: GINGIVAL ABSCESS
     Dosage: ?          QUANTITY:1 DF DOSAGE FORM;?
     Route: 048
     Dates: start: 20210317, end: 20210325

REACTIONS (9)
  - Diplopia [None]
  - Intraocular pressure test [None]
  - Blindness [None]
  - Vision blurred [None]
  - Eye disorder [None]
  - Headache [None]
  - Papilloedema [None]
  - Dental discomfort [None]
  - Glare [None]

NARRATIVE: CASE EVENT DATE: 20210331
